FAERS Safety Report 8050057-4 (Version None)
Quarter: 2011Q4

REPORT INFORMATION
  Report Type: 
  Country: None (occurrence: None)
  Receive Date: 20111212
  Receipt Date: 20110812
  Transmission Date: 20120403
  Serious: Yes (Hospitalization)
  Sender: FDA-Public Use
  Company Number: PHEH2011US01591

PATIENT
  Age: 33 Year
  Sex: Female

DRUGS (4)
  1. TOBRAMAX (TOBRAMYCIN) [Concomitant]
  2. ATIVAN [Concomitant]
  3. EXTAVIA [Suspect]
     Indication: MULTIPLE SCLEROSIS
     Dosage: 0.062MG, QOD, SUBCUTANEOUS; 0.125MG, SUBCUTANEOUS
     Route: 058
     Dates: start: 20110701
  4. KEPRA (LEVETIRACETAM) [Concomitant]

REACTIONS (6)
  - FLUSHING [None]
  - DISORIENTATION [None]
  - MULTIPLE SCLEROSIS RELAPSE [None]
  - FEELING ABNORMAL [None]
  - HYPOAESTHESIA [None]
  - CONVULSION [None]
